FAERS Safety Report 6610850-9 (Version None)
Quarter: 2010Q1

REPORT INFORMATION
  Report Type: 
  Country: None (occurrence: None)
  Receive Date: 20100219
  Receipt Date: 20100209
  Transmission Date: 20100710
  Serious: Yes (Other)
  Sender: FDA-Public Use
  Company Number: 006891

PATIENT
  Sex: Male
  Weight: 3.6 kg

DRUGS (3)
  1. KEPPRA [Suspect]
     Indication: EPILEPSY
     Dosage: 500 MG TRANSPLACENTAL
     Route: 064
     Dates: start: 20071101, end: 20080101
  2. NEURONTIN [Suspect]
     Indication: EPILEPSY
     Dosage: 800 MG BID
     Dates: start: 20061201
  3. SPECIAFOLDINE [Concomitant]

REACTIONS (3)
  - DRUG EXPOSURE DURING PREGNANCY [None]
  - PREGNANCY [None]
  - UNEVALUABLE EVENT [None]
